FAERS Safety Report 5721664-6 (Version None)
Quarter: 2008Q2

REPORT INFORMATION
  Report Type: 
  Country: None (occurrence: None)
  Receive Date: 20080429
  Receipt Date: 20080423
  Transmission Date: 20081010
  Serious: Yes (Hospitalization, Other)
  Sender: FDA-Public Use
  Company Number: PHRM2008FR01380

PATIENT
  Age: 80 Year
  Sex: Female

DRUGS (1)
  1. ZOMETA [Suspect]
     Indication: OSTEOPOROSIS
     Route: 042

REACTIONS (3)
  - CREATININE RENAL CLEARANCE DECREASED [None]
  - INTENTIONAL DRUG MISUSE [None]
  - RENAL TUBULAR NECROSIS [None]
